FAERS Safety Report 14203370 (Version 2)
Quarter: 2017Q4

REPORT INFORMATION
  Report Type: Spontaneous
  Country: BR (occurrence: BR)
  Receive Date: 20171120
  Receipt Date: 20171123
  Transmission Date: 20180321
  Serious: Yes (Hospitalization)
  Sender: FDA-Public Use
  Company Number: BR-B.I. PHARMACEUTICALS,INC./RIDGEFIELD-2017-BI-061332

PATIENT
  Age: 94 Year
  Sex: Female

DRUGS (3)
  1. SIFROL [Suspect]
     Active Substance: PRAMIPEXOLE
     Route: 048
     Dates: start: 20171109, end: 20171112
  2. SIFROL [Suspect]
     Active Substance: PRAMIPEXOLE
     Route: 048
  3. SIFROL [Suspect]
     Active Substance: PRAMIPEXOLE
     Indication: PARKINSON^S DISEASE
     Route: 048
     Dates: start: 201710, end: 20171112

REACTIONS (3)
  - Urinary tract infection [Recovered/Resolved]
  - Somnolence [Recovered/Resolved]
  - Incorrect dose administered [Recovered/Resolved]

NARRATIVE: CASE EVENT DATE: 20171108
